FAERS Safety Report 5294961-9 (Version None)
Quarter: 2007Q2

REPORT INFORMATION
  Report Type: 
  Country: None (occurrence: None)
  Receive Date: 20070412
  Receipt Date: 20070403
  Transmission Date: 20071010
  Serious: Yes (Other)
  Sender: FDA-Public Use
  Company Number: US-ROCHE-485756

PATIENT
  Age: 54 Year
  Sex: Female
  Weight: 61.7 kg

DRUGS (1)
  1. BONIVA [Suspect]
     Indication: OSTEOPOROSIS
     Route: 048
     Dates: start: 20070315, end: 20070315

REACTIONS (6)
  - ABASIA [None]
  - AGITATION [None]
  - ARTHRALGIA [None]
  - BONE PAIN [None]
  - NAUSEA [None]
  - PAIN IN EXTREMITY [None]
